FAERS Safety Report 6665882-1 (Version None)
Quarter: 2010Q2

REPORT INFORMATION
  Report Type: 
  Country: None (occurrence: None)
  Receive Date: 20100402
  Receipt Date: 20100324
  Transmission Date: 20101027
  Serious: Yes (Other)
  Sender: FDA-Public Use
  Company Number: FR-ROCHE-693249

PATIENT
  Sex: Female
  Weight: 68 kg

DRUGS (7)
  1. MYCOPHENOLATE MOFETIL [Suspect]
     Route: 065
     Dates: start: 20100207, end: 20100315
  2. MYCOPHENOLATE MOFETIL [Suspect]
     Route: 065
     Dates: start: 20100316
  3. PROGRAF [Suspect]
     Route: 065
     Dates: start: 20100210, end: 20100219
  4. PROGRAF [Suspect]
     Route: 065
     Dates: start: 20100220
  5. CORTANCYL [Suspect]
     Dosage: 35 MG FOLLOWED BY 17.5 MG
     Route: 065
     Dates: start: 20100208, end: 20100218
  6. SIMULECT [Concomitant]
     Dates: start: 20100207, end: 20100207
  7. SIMULECT [Concomitant]
     Dates: start: 20100211, end: 20100211

REACTIONS (1)
  - TRANSPLANT REJECTION [None]
